FAERS Safety Report 13763141 (Version 1)
Quarter: 2017Q3

REPORT INFORMATION
  Report Type: Spontaneous
  Country: US (occurrence: US)
  Receive Date: 20170718
  Receipt Date: 20170718
  Transmission Date: 20171127
  Serious: Yes (Hospitalization, Other)
  Sender: FDA-Public Use
  Company Number: None

PATIENT
  Age: 39 Year
  Sex: Female
  Weight: 54 kg

DRUGS (6)
  1. TOPAMAX [Concomitant]
     Active Substance: TOPIRAMATE
  2. ARMOUR THYROID [Concomitant]
     Active Substance: THYROID, PORCINE
  3. 750MG EX LEVETIRACETAM [Suspect]
     Active Substance: LEVETIRACETAM
     Indication: SEIZURE
     Dosage: ?          OTHER STRENGTH:MG;QUANTITY:1 TABLET(S);?
     Route: 048
  4. MULTI VITAMIN [Concomitant]
     Active Substance: VITAMINS
  5. BRIVIACT [Concomitant]
     Active Substance: BRIVARACETAM
  6. WELLBUTRURIN [Concomitant]

REACTIONS (6)
  - Depression [None]
  - Seizure [None]
  - Suicide attempt [None]
  - Hallucination [None]
  - Joint injury [None]
  - Intentional self-injury [None]

NARRATIVE: CASE EVENT DATE: 20170311
